FAERS Safety Report 6757184-X (Version None)
Quarter: 2010Q2

REPORT INFORMATION
  Report Type: 
  Country: None (occurrence: None)
  Receive Date: 20100607
  Receipt Date: 20100528
  Transmission Date: 20101027
  Serious: Yes (Other)
  Sender: FDA-Public Use
  Company Number: US-BIOGENIDEC-2010BI017947

PATIENT
  Age: 59 Year
  Sex: Female
  Weight: 40 kg

DRUGS (3)
  1. TYSABRI [Suspect]
     Indication: MULTIPLE SCLEROSIS
     Route: 042
     Dates: start: 20070226, end: 20100204
  2. COPAXONE [Concomitant]
     Route: 058
     Dates: start: 20100205
  3. BOTOX [Concomitant]

REACTIONS (1)
  - COMPLEX PARTIAL SEIZURES [None]
